FAERS Safety Report 9407879 (Version 3)
Quarter: 2013Q3

REPORT INFORMATION
  Report Type: Spontaneous
  Country: JP (occurrence: JP)
  Receive Date: 20130718
  Receipt Date: 20130830
  Transmission Date: 20140515
  Serious: Yes (Hospitalization, Other)
  Sender: FDA-Public Use
  Company Number: JP-BAYER-2013-083819

PATIENT
  Age: 68 Year
  Sex: Male

DRUGS (5)
  1. EOB PRIMOVIST [Suspect]
     Indication: NUCLEAR MAGNETIC RESONANCE IMAGING LIVER
     Dosage: 10 ML, ONCE
     Route: 042
     Dates: start: 20130705, end: 20130705
  2. EOB PRIMOVIST [Suspect]
     Indication: HEPATOCELLULAR CARCINOMA
  3. AMARYL [Concomitant]
     Indication: DIABETES MELLITUS
     Dosage: DAILY DOSE 1 MG
     Route: 048
  4. JANUVIA [Concomitant]
     Indication: DIABETES MELLITUS
     Dosage: DAILY DOSE 50 MG
     Route: 048
  5. BASEN [Concomitant]
     Indication: DIABETES MELLITUS
     Dosage: DAILY DOSE .6 MG
     Route: 048

REACTIONS (2)
  - Pyrexia [Recovered/Resolved]
  - Platelet count decreased [Recovering/Resolving]
